FAERS Safety Report 8739253 (Version 2)
Quarter: 2014Q1

REPORT INFORMATION
  Report Type: Report from Study
  Country: IT (occurrence: IT)
  Receive Date: 20120823
  Receipt Date: 20140219
  Transmission Date: 20141002
  Serious: Yes (Hospitalization)
  Sender: FDA-Public Use
  Company Number: IT-JNJFOC-20120810061

PATIENT
  Sex: Female
  Weight: 50 kg

DRUGS (3)
  1. REMICADE [Suspect]
     Indication: COLITIS ULCERATIVE
     Route: 042
     Dates: start: 20100217, end: 20100526
  2. MESALAZINE [Concomitant]
     Indication: COLITIS ULCERATIVE
     Route: 048
     Dates: start: 20110622, end: 201110
  3. MESALAZINE [Concomitant]
     Indication: COLITIS ULCERATIVE
     Route: 054
     Dates: start: 20110622, end: 20111017

REACTIONS (1)
  - Colitis ulcerative [Recovered/Resolved]
